FAERS Safety Report 4358497-1 (Version None)
Quarter: 2004Q2

REPORT INFORMATION
  Report Type: 
  Country: None (occurrence: None)
  Receive Date: 20040514
  Receipt Date: 20040212
  Transmission Date: 20050107
  Serious: Yes (Other)
  Sender: FDA-Public Use
  Company Number: US-GLAXOSMITHKLINE-A0498017A

PATIENT
  Age: 49 Year
  Sex: Male
  Weight: 83.6 kg

DRUGS (2)
  1. LAMICTAL [Suspect]
     Indication: ILL-DEFINED DISORDER
     Dosage: 12.5MG PER DAY
     Route: 048
     Dates: start: 20020126, end: 20020204
  2. ATIVAN [Concomitant]

REACTIONS (4)
  - CONJUNCTIVAL HAEMORRHAGE [None]
  - CONJUNCTIVAL HYPERAEMIA [None]
  - KERATOCONJUNCTIVITIS SICCA [None]
  - LACRIMAL DISORDER [None]
